FAERS Safety Report 8792646 (Version 4)
Quarter: 2014Q3

REPORT INFORMATION
  Report Type: Report from Study
  Country: JP (occurrence: JP)
  Receive Date: 20120918
  Receipt Date: 20140908
  Transmission Date: 20150326
  Serious: Yes (Hospitalization)
  Sender: FDA-Public Use
  Company Number: JP-JNJFOC-20120905720

PATIENT
  Age: 43 Year
  Sex: Male
  Weight: 60 kg

DRUGS (15)
  1. STEROIDS NOS [Concomitant]
     Active Substance: UNSPECIFIED INGREDIENT
     Route: 065
  2. REMICADE [Suspect]
     Active Substance: INFLIXIMAB
     Indication: COLITIS ULCERATIVE
     Route: 042
     Dates: start: 20110115
  3. PENTASA [Concomitant]
     Active Substance: MESALAMINE
     Indication: COLITIS ULCERATIVE
     Route: 054
     Dates: start: 20110910
  4. REMICADE [Suspect]
     Active Substance: INFLIXIMAB
     Indication: COLITIS ULCERATIVE
     Route: 042
     Dates: start: 20110307
  5. LEUKERIN [Suspect]
     Active Substance: MERCAPTOPURINE
     Indication: COLITIS ULCERATIVE
     Dosage: INITIATED 1 MONTH BEFORE THE ADMINISTRATION OF INFLIXIMAB
     Route: 048
  6. REMICADE [Suspect]
     Active Substance: INFLIXIMAB
     Indication: COLITIS ULCERATIVE
     Route: 042
     Dates: start: 20101218
  7. ADRENOCORTICAL HORMONE [Concomitant]
     Active Substance: CORTICOSTEROID NOS
     Indication: COLITIS ULCERATIVE
     Dosage: ADRENAL HORMONE PREPARATIONS
     Route: 065
  8. REMICADE [Suspect]
     Active Substance: INFLIXIMAB
     Indication: COLITIS ULCERATIVE
     Route: 042
     Dates: start: 20110506
  9. ASACOL [Concomitant]
     Active Substance: MESALAMINE
     Indication: COLITIS ULCERATIVE
     Route: 048
     Dates: start: 20110820
  10. DEPAS [Concomitant]
     Active Substance: ETIZOLAM
     Dosage: BEFORE THE ADMINISTRATION OF INFLIXIMAB
     Route: 048
  11. REMICADE [Suspect]
     Active Substance: INFLIXIMAB
     Indication: COLITIS ULCERATIVE
     Route: 042
     Dates: start: 20110625
  12. REMICADE [Suspect]
     Active Substance: INFLIXIMAB
     Indication: COLITIS ULCERATIVE
     Dosage: 7TH DOSE OF INFLIXIMAB
     Route: 042
     Dates: start: 20110820
  13. BIO-THREE [Concomitant]
     Active Substance: HERBALS
     Indication: COLITIS ULCERATIVE
     Dosage: DOSE: 3TAB.??V3.BEFORE THE ADMINISTRATION OF THE INFLIXIAMB. 3 DF.
     Route: 048
  14. REMICADE [Suspect]
     Active Substance: INFLIXIMAB
     Indication: COLITIS ULCERATIVE
     Route: 042
     Dates: start: 20101204
  15. SALAZOPYRIN [Concomitant]
     Active Substance: SULFASALAZINE
     Indication: COLITIS ULCERATIVE
     Dosage: INITIATED 1 MONTH BEFORE THE ADMINISTRATION OF INFLIXIMAB
     Route: 048
     Dates: end: 20110819

REACTIONS (1)
  - Cytomegalovirus infection [Recovering/Resolving]

NARRATIVE: CASE EVENT DATE: 20110826
